FAERS Safety Report 5841819-X (Version None)
Quarter: 2008Q3

REPORT INFORMATION
  Report Type: 
  Country: None (occurrence: None)
  Receive Date: 20080812
  Receipt Date: 20080806
  Transmission Date: 20090109
  Serious: Yes (Other)
  Sender: FDA-Public Use
  Company Number: B0361595A

PATIENT
  Age: 42 Year
  Sex: Female

DRUGS (5)
  1. SEROXAT [Suspect]
     Dosage: 20MG PER DAY
     Route: 065
     Dates: start: 19960902
  2. SEROXAT [Suspect]
     Route: 065
     Dates: start: 20041018
  3. ESTRADERM [Concomitant]
     Dosage: 50MCG UNKNOWN
     Route: 065
  4. HALOPERIDOL [Concomitant]
  5. THYROXINE [Concomitant]

REACTIONS (16)
  - ANGER [None]
  - ANXIETY [None]
  - APRAXIA [None]
  - DISSOCIATION [None]
  - DISTURBANCE IN ATTENTION [None]
  - DIZZINESS [None]
  - DRUG WITHDRAWAL SYNDROME [None]
  - DYSPRAXIA [None]
  - EMOTIONAL DISORDER [None]
  - HEADACHE [None]
  - LETHARGY [None]
  - MEMORY IMPAIRMENT [None]
  - MIGRAINE [None]
  - MOOD ALTERED [None]
  - NAUSEA [None]
  - SUICIDAL IDEATION [None]
